FAERS Safety Report 17892251 (Version 3)
Quarter: 2021Q4

REPORT INFORMATION
  Report Type: Spontaneous
  Country: US (occurrence: US)
  Receive Date: 20200612
  Receipt Date: 20211119
  Transmission Date: 20220303
  Serious: No
  Sender: FDA-Public Use
  Company Number: US-BIOMARINAP-US-2020-130256

PATIENT
  Age: 19 Year
  Sex: Female

DRUGS (2)
  1. ALDURAZYME [Suspect]
     Active Substance: LARONIDASE
     Indication: Mucopolysaccharidosis I
     Dosage: 43.5 MILLIGRAM, QW
     Route: 042
     Dates: start: 20190816
  2. ALDURAZYME [Suspect]
     Active Substance: LARONIDASE
     Dosage: 34.8 MILLIGRAM, QW
     Route: 042
     Dates: start: 20200516

REACTIONS (4)
  - Knee operation [Recovering/Resolving]
  - Product use issue [Unknown]
  - Poor venous access [Unknown]
  - Product dose omission issue [Unknown]

NARRATIVE: CASE EVENT DATE: 20200512
